FAERS Safety Report 23480296 (Version 1)
Quarter: 2024Q1

REPORT INFORMATION
  Report Type: Spontaneous
  Country: US (occurrence: US)
  Receive Date: 20240205
  Receipt Date: 20240205
  Transmission Date: 20240410
  Serious: No
  Sender: FDA-Public Use
  Company Number: US-PADAGIS-2024PAD00072

PATIENT

DRUGS (1)
  1. CICLOPIROX [Suspect]
     Active Substance: CICLOPIROX\TOCOPHEROL
     Indication: Onychomycosis
     Dosage: UNK
     Route: 061
     Dates: start: 202312, end: 202401

REACTIONS (1)
  - Nail discolouration [Unknown]

NARRATIVE: CASE EVENT DATE: 20230101
